FAERS Safety Report 15452126 (Version 1)
Quarter: 2018Q4

REPORT INFORMATION
  Report Type: Spontaneous
  Country: US (occurrence: US)
  Receive Date: 20181001
  Receipt Date: 20181001
  Transmission Date: 20190204
  Serious: No
  Sender: FDA-Public Use
  Company Number: US-NEOS THERAPEUTICS, LP-2018NEO00099

PATIENT

DRUGS (1)
  1. COTEMPLA XR-ODT [Suspect]
     Active Substance: METHYLPHENIDATE

REACTIONS (1)
  - Abdominal pain upper [Unknown]
